FAERS Safety Report 4545034-1 (Version None)
Quarter: 2004Q4

REPORT INFORMATION
  Report Type: 
  Country: None (occurrence: None)
  Receive Date: 20041230
  Receipt Date: 20041213
  Transmission Date: 20050328
  Serious: Yes (Other)
  Sender: FDA-Public Use
  Company Number: EM2004-0638

PATIENT
  Age: 27 Year
  Sex: Female

DRUGS (8)
  1. TOBI [Suspect]
     Indication: PSEUDOMONAS INFECTION
     Dosage: 300 MG, BID, INHALATION
     Route: 055
     Dates: start: 20040301, end: 20040401
  2. SANDOCAL B FORTE [Concomitant]
  3. PREDNISOLONE [Concomitant]
  4. ACETYLCYSTEINE [Concomitant]
  5. SORTIS [Concomitant]
  6. ATROVENT [Concomitant]
  7. SULTANOL (SALBUTAMOL) [Concomitant]
  8. PERENTEROL             (YEAST DRIED) [Concomitant]

REACTIONS (2)
  - APHONIA [None]
  - HOARSENESS [None]
